FAERS Safety Report 9276943 (Version 1)
Quarter: 2013Q2

REPORT INFORMATION
  Report Type: Spontaneous
  Country: DE (occurrence: None)
  Receive Date: 20130501
  Receipt Date: 20130501
  Transmission Date: 20140414
  Serious: Yes (Hospitalization)
  Sender: FDA-Public Use
  Company Number: ACO_35724_2013

PATIENT
  Age: 66 Year
  Sex: Female

DRUGS (8)
  1. FAMPYRA (DALFAMPRIDINE) TABLET, 10MG [Suspect]
     Route: 048
     Dates: start: 20121004, end: 20130328
  2. BISOPROLOL (BISOPROLOL FUMARATE) [Concomitant]
  3. AMANTADINE (AMANTADINE SULFATE) [Concomitant]
  4. AZATHIOPRINE (AZATHIOPRINE) [Concomitant]
  5. TORASEMIDE [Concomitant]
  6. VIGANTOLETTEN (COLECALCIFEROL) [Concomitant]
  7. IBUPROFEN (IBUPROFEN) [Concomitant]
  8. OLMETEC PLUS (HYDROCHLOROTHIAZIDE, OLMESARTAN MEDOXOMIL) (TABLET) (HYDROCHLOROTHIAZIDE, OLMESARTAN MEDOXOMIL) [Concomitant]

REACTIONS (1)
  - Epilepsy [None]
